FAERS Safety Report 20023534 (Version 1)
Quarter: 2021Q4

REPORT INFORMATION
  Report Type: Spontaneous
  Country: GB (occurrence: GB)
  Receive Date: 20211102
  Receipt Date: 20211102
  Transmission Date: 20220304
  Serious: Yes (Disabling)
  Sender: FDA-Public Use
  Company Number: None

PATIENT
  Age: 41 Year
  Sex: Male
  Weight: 115 kg

DRUGS (7)
  1. METFORMIN [Suspect]
     Active Substance: METFORMIN HYDROCHLORIDE
     Indication: Diabetes mellitus
     Dates: start: 20210601
  2. METFORMIN [Suspect]
     Active Substance: METFORMIN HYDROCHLORIDE
  3. METFORMIN [Suspect]
     Active Substance: METFORMIN HYDROCHLORIDE
  4. BISOPROLOL [Concomitant]
     Active Substance: BISOPROLOL
     Indication: Product used for unknown indication
  5. CETIRIZINE [Concomitant]
     Active Substance: CETIRIZINE HYDROCHLORIDE
     Indication: Product used for unknown indication
  6. LANSOPRAZOLE [Concomitant]
     Active Substance: LANSOPRAZOLE
     Indication: Product used for unknown indication
  7. PEPPERMINT OIL [Concomitant]
     Active Substance: PEPPERMINT OIL
     Indication: Product used for unknown indication

REACTIONS (3)
  - Constipation [Not Recovered/Not Resolved]
  - Headache [Not Recovered/Not Resolved]
  - Diarrhoea [Not Recovered/Not Resolved]
